FAERS Safety Report 4437572-7 (Version None)
Quarter: 2004Q3

REPORT INFORMATION
  Report Type: 
  Country: None (occurrence: None)
  Receive Date: 20040827
  Receipt Date: 20040816
  Transmission Date: 20050211
  Serious: Yes (Other)
  Sender: FDA-Public Use
  Company Number: 2004228151DE

PATIENT
  Sex: Female
  Weight: 79 kg

DRUGS (2)
  1. MEDROXYPROGESTERONE ACETATE INJ [Suspect]
     Indication: CONTRACEPTION
     Dosage: SEE IMAGE,
     Route: 030
     Dates: start: 20020901, end: 20020901
  2. MEDROXYPROGESTERONE ACETATE INJ [Suspect]
     Indication: CONTRACEPTION
     Dosage: SEE IMAGE,
     Route: 030
     Dates: start: 20031201, end: 20031201

REACTIONS (2)
  - NEOPLASM PROGRESSION [None]
  - NEUROFIBROMA [None]
